FAERS Safety Report 6489863-6 (Version None)
Quarter: 2009Q4

REPORT INFORMATION
  Report Type: 
  Country: None (occurrence: None)
  Receive Date: 20091211
  Receipt Date: 20091204
  Transmission Date: 20100525
  Serious: No
  Sender: FDA-Public Use
  Company Number: CA-JNJFOC-20091006338

PATIENT
  Sex: Female

DRUGS (3)
  1. SIMPONI [Suspect]
     Route: 058
  2. SIMPONI [Suspect]
     Route: 058
  3. SIMPONI [Suspect]
     Indication: RHEUMATOID ARTHRITIS
     Route: 058

REACTIONS (5)
  - INJECTION SITE HAEMATOMA [None]
  - ORAL HERPES [None]
  - PAIN IN EXTREMITY [None]
  - POLLAKIURIA [None]
  - RASH [None]
